FAERS Safety Report 5497996-6 (Version None)
Quarter: 2007Q4

REPORT INFORMATION
  Report Type: 
  Country: None (occurrence: None)
  Receive Date: 20071025
  Receipt Date: 20071015
  Transmission Date: 20080405
  Serious: Yes (Hospitalization, Other)
  Sender: FDA-Public Use
  Company Number: US-PFIZER INC-2007064234

PATIENT
  Sex: Female
  Weight: 86.2 kg

DRUGS (5)
  1. AMLODIPINE [Suspect]
     Indication: HYPERTENSION
     Route: 048
  2. NORVASC [Suspect]
     Dates: start: 20070115, end: 20070401
  3. LANTUS [Concomitant]
  4. METFORMIN [Concomitant]
  5. GLIPIZIDE [Concomitant]

REACTIONS (3)
  - BLOOD PRESSURE INADEQUATELY CONTROLLED [None]
  - CEREBROVASCULAR ACCIDENT [None]
  - HEADACHE [None]
